FAERS Safety Report 8543365-1 (Version None)
Quarter: 2012Q3

REPORT INFORMATION
  Report Type: 
  Country: None (occurrence: None)
  Receive Date: 20120727
  Receipt Date: 20120716
  Transmission Date: 20120928
  Serious: Yes (Hospitalization)
  Sender: FDA-Public Use
  Company Number: FR-NOVOPROD-356120

PATIENT
  Age: 68 Year
  Sex: Male

DRUGS (9)
  1. RABEPRAZOLE SODIUM [Suspect]
     Indication: GASTROINTESTINAL DISORDER
  2. METFORMIN HCL [Concomitant]
  3. NEBIVOLOL HCL [Concomitant]
  4. NIFEDIPINE [Concomitant]
  5. VICTOZA [Suspect]
     Indication: TYPE 2 DIABETES MELLITUS
     Dosage: UNK
     Route: 058
     Dates: start: 20120327
  6. DIAMICRON [Concomitant]
  7. RAMIPRIL [Concomitant]
  8. ATORVASTATIN [Concomitant]
  9. MEDIATENSYL                        /00631801/ [Concomitant]

REACTIONS (2)
  - GASTROINTESTINAL DISORDER [None]
  - PANCYTOPENIA [None]
